FAERS Safety Report 9113202 (Version 1)
Quarter: 2013Q1

REPORT INFORMATION
  Report Type: Spontaneous
  Country: US (occurrence: US)
  Receive Date: 20130211
  Receipt Date: 20130211
  Transmission Date: 20140127
  Serious: Yes (Life-Threatening, Other)
  Sender: FDA-Public Use
  Company Number: US-ASTRAZENECA-2013SE04720

PATIENT
  Age: 64 Year
  Sex: Female
  Weight: 67.1 kg

DRUGS (14)
  1. TOPROL XL [Suspect]
     Indication: HYPERTENSION
     Route: 048
     Dates: start: 20100226
  2. OMEPRAZOLE [Suspect]
     Route: 048
     Dates: start: 1998
  3. CRESTOR [Suspect]
     Indication: BLOOD CHOLESTEROL INCREASED
     Route: 048
     Dates: start: 20100306
  4. SYNTHROID [Concomitant]
     Indication: HYPOTHYROIDISM
     Route: 048
     Dates: start: 1987
  5. VIVELLE-DOT [Concomitant]
     Dosage: 0.1 MG, 2 PATCHES, WEEK
     Route: 061
     Dates: start: 1994
  6. GABAPENTIN [Concomitant]
     Dosage: 100 MG 23/26 PI LIS, DAILY
     Route: 048
     Dates: start: 20090522
  7. LUNESTA [Concomitant]
     Route: 048
     Dates: start: 2008
  8. VOLTAREN [Concomitant]
     Indication: ARTHRITIS
     Route: 061
     Dates: start: 2009
  9. LIDODERM [Concomitant]
     Indication: BACK DISORDER
     Route: 061
     Dates: start: 200711
  10. EPI-PENN [Concomitant]
     Indication: EMERGENCY CARE
     Dates: start: 1998
  11. CITRICAL PLUS D [Concomitant]
     Route: 048
     Dates: start: 1987
  12. POTASSIUM [Concomitant]
     Route: 048
     Dates: start: 1987
  13. D-3 [Concomitant]
     Route: 048
     Dates: start: 2011
  14. PROAIR [Concomitant]
     Indication: EMERGENCY CARE
     Route: 055
     Dates: start: 1998

REACTIONS (5)
  - Adverse event [Unknown]
  - Respiratory syncytial virus infection [Recovering/Resolving]
  - Bronchitis [Unknown]
  - Speech disorder [Unknown]
  - Blood pressure inadequately controlled [Unknown]
